FAERS Safety Report 22182889 (Version 2)
Quarter: 2023Q2

REPORT INFORMATION
  Report Type: Spontaneous
  Country: US (occurrence: US)
  Receive Date: 20230406
  Receipt Date: 20230425
  Transmission Date: 20230722
  Serious: No
  Sender: FDA-Public Use
  Company Number: US-ALLERGAN-2300569US

PATIENT
  Age: 34 Year
  Sex: Female
  Weight: 90.718 kg

DRUGS (1)
  1. QULIPTA [Suspect]
     Active Substance: ATOGEPANT
     Indication: Migraine
     Dosage: 10 MG, AS NEEDED
     Route: 048
     Dates: start: 20221202, end: 20221229

REACTIONS (2)
  - COVID-19 [Recovering/Resolving]
  - Nasopharyngitis [Recovering/Resolving]

NARRATIVE: CASE EVENT DATE: 20230105
